FAERS Safety Report 7326487-2 (Version None)
Quarter: 2011Q1

REPORT INFORMATION
  Report Type: 
  Country: None (occurrence: None)
  Receive Date: 20110302
  Receipt Date: 20110228
  Transmission Date: 20110831
  Serious: Yes (Other)
  Sender: FDA-Public Use
  Company Number: ES-ABBOTT-11P-144-0707614-00

PATIENT
  Age: 17 Year
  Sex: Male
  Weight: 62 kg

DRUGS (4)
  1. HUMIRA [Suspect]
     Route: 058
     Dates: end: 20110216
  2. IMUREL [Concomitant]
     Indication: COLITIS
     Dosage: 2.6 MG/KG/DAY
     Route: 050
     Dates: start: 20090101
  3. HUMIRA [Suspect]
     Indication: COLITIS
     Dosage: 80 MG LOADING DOSE
     Route: 058
     Dates: start: 20110101, end: 20110101
  4. MESALAMINE [Concomitant]
     Indication: COLITIS
     Route: 048
     Dates: start: 20080101

REACTIONS (2)
  - URTICARIA [None]
  - PRURITUS GENERALISED [None]
